FAERS Safety Report 5023539-7 (Version None)
Quarter: 2006Q2

REPORT INFORMATION
  Report Type: 
  Country: None (occurrence: None)
  Receive Date: 20060606
  Receipt Date: 20060526
  Transmission Date: 20061013
  Serious: Yes (Death, Hospitalization)
  Sender: FDA-Public Use
  Company Number: 2005-00006

PATIENT
  Age: 50 Year
  Sex: Male
  Weight: 107 kg

DRUGS (5)
  1. VELCADE [Suspect]
     Indication: MULTIPLE MYELOMA
     Dosage: 2.70 MG, UNK, IV BOLUS
     Route: 040
     Dates: start: 20041220, end: 20041230
  2. LOMIR (ISRADIPINE) [Concomitant]
  3. MILURIT (ALLOPURINOL) [Concomitant]
  4. FRAGMIN [Concomitant]
  5. MAGNESIUM LACTATE [Concomitant]

REACTIONS (7)
  - BRONCHOPNEUMONIA [None]
  - MULTI-ORGAN FAILURE [None]
  - PANCYTOPENIA [None]
  - PULMONARY OEDEMA [None]
  - RESPIRATORY FAILURE [None]
  - SEPTIC SHOCK [None]
  - SUPRAVENTRICULAR TACHYCARDIA [None]
